FAERS Safety Report 7201742-5 (Version None)
Quarter: 2010Q4

REPORT INFORMATION
  Report Type: 
  Country: None (occurrence: None)
  Receive Date: 20101216
  Receipt Date: 20101202
  Transmission Date: 20110411
  Serious: Yes (Disabling)
  Sender: FDA-Public Use
  Company Number: TPA2010A04599

PATIENT
  Age: 78 Year
  Sex: Male

DRUGS (7)
  1. ADENURIC (FEBUXOSTAT) [Suspect]
     Indication: HYPERURICAEMIA
     Dosage: 120 MG (120 MG,1 IN 1 D) PER ORAL ; 80 MG (80 MG,1 IN 1 D) PER ORAL
     Route: 048
     Dates: start: 20100521
  2. COLCHICINE [Suspect]
     Indication: GOUT
     Dosage: 1 MG (1 MG) PER ORAL
     Route: 048
  3. NEBILOX (NEBIVOLOL HYDROCHLORIDE) [Concomitant]
  4. HYTACAN(HYDROCHLOROTHIAZIDE, CANDESARTAN CILEXETIL) [Concomitant]
  5. UVESTEROL (ERGOCALCIFEROL, ASCORBIC ACID, TOCOPHEROL, RETINOL) [Concomitant]
  6. VOLTAREN [Concomitant]
  7. KARDEGIC (ACETYLSALICYLIC LYSINE) [Concomitant]

REACTIONS (12)
  - AGGRESSION [None]
  - COUGH [None]
  - DIARRHOEA [None]
  - FATIGUE [None]
  - FLATULENCE [None]
  - GOUT [None]
  - HYPOAESTHESIA [None]
  - MUSCLE SPASMS [None]
  - NERVOUSNESS [None]
  - OEDEMA PERIPHERAL [None]
  - SLEEP DISORDER [None]
  - SLUGGISHNESS [None]
